FAERS Safety Report 7383582-X (Version None)
Quarter: 2011Q1

REPORT INFORMATION
  Report Type: 
  Country: None (occurrence: None)
  Receive Date: 20110328
  Receipt Date: 20110328
  Transmission Date: 20110831
  Serious: Yes (Hospitalization)
  Sender: FDA-Public Use
  Company Number: None

PATIENT
  Sex: Male
  Weight: 56.6 kg

DRUGS (1)
  1. TRAZODONE HCL [Suspect]
     Indication: SLEEP DISORDER THERAPY
     Dosage: 50MG TIMES 1 PO
     Route: 048
     Dates: start: 20110322, end: 20110323

REACTIONS (3)
  - HYPOTENSION [None]
  - NO THERAPEUTIC RESPONSE [None]
  - PRIAPISM [None]
